FAERS Safety Report 8282091-3 (Version None)
Quarter: 2012Q2

REPORT INFORMATION
  Report Type: 
  Country: None (occurrence: None)
  Receive Date: 20120410
  Receipt Date: 20120403
  Transmission Date: 20120825
  Serious: Yes (Hospitalization)
  Sender: FDA-Public Use
  Company Number: 2011SP046645

PATIENT
  Age: 27 Year
  Sex: Female
  Weight: 58.9676 kg

DRUGS (3)
  1. NUVARING [Suspect]
     Indication: CONTRACEPTION
     Dates: start: 20030101, end: 20080801
  2. NUVARING [Suspect]
     Indication: CONTRACEPTION
     Dates: end: 20081001
  3. VITAMIN AND MINERAL PRENATAL SUPPLEMENT W/ FOLIC ACID CAP [Concomitant]

REACTIONS (12)
  - HYPERSENSITIVITY [None]
  - PAPILLOMA VIRAL INFECTION [None]
  - ECONOMIC PROBLEM [None]
  - PREGNANCY [None]
  - HYDROCEPHALUS [None]
  - BACK DISORDER [None]
  - CERVICAL DYSPLASIA [None]
  - MIGRAINE [None]
  - HAEMORRHAGIC STROKE [None]
  - MATERNAL EXPOSURE BEFORE PREGNANCY [None]
  - BRAIN NEOPLASM [None]
  - CAESAREAN SECTION [None]
